FAERS Safety Report 5755468-5 (Version None)
Quarter: 2008Q2

REPORT INFORMATION
  Report Type: 
  Country: None (occurrence: None)
  Receive Date: 20080602
  Receipt Date: 20080519
  Transmission Date: 20081010
  Serious: Yes (Hospitalization, Other)
  Sender: FDA-Public Use
  Company Number: US-BAYER-200816687NA

PATIENT
  Age: 56 Year
  Sex: Male
  Weight: 86 kg

DRUGS (5)
  1. BETASERON [Suspect]
     Indication: RELAPSING-REMITTING MULTIPLE SCLEROSIS
     Dosage: TOTAL DAILY DOSE: 8 MIU
     Route: 058
     Dates: start: 19930101, end: 20070801
  2. BACLOFEN [Concomitant]
  3. PAXIL [Concomitant]
  4. AMBIEN [Concomitant]
  5. CRESTOR [Concomitant]

REACTIONS (2)
  - ABSCESS LIMB [None]
  - SKIN BACTERIAL INFECTION [None]
